FAERS Safety Report 7266916-6 (Version None)
Quarter: 2011Q1

REPORT INFORMATION
  Report Type: 
  Country: None (occurrence: None)
  Receive Date: 20110201
  Receipt Date: 20110120
  Transmission Date: 20110831
  Serious: Yes (Other)
  Sender: FDA-Public Use
  Company Number: US-ELI_LILLY_AND_COMPANY-US201101005561

PATIENT
  Age: 38 Year
  Sex: Female

DRUGS (6)
  1. CYMBALTA [Suspect]
     Dosage: 30 MG, QOD
  2. CYMBALTA [Suspect]
     Dosage: UNK, UNKNOWN
  3. WELLBUTRIN [Concomitant]
  4. CYMBALTA [Suspect]
     Dosage: 30 MG, DAILY (1/D)
  5. CYMBALTA [Suspect]
     Dosage: 30 MG, QOD
  6. CYMBALTA [Suspect]
     Indication: DEPRESSION
     Dosage: 60 MG, DAILY (1/D)

REACTIONS (9)
  - VOMITING [None]
  - INSOMNIA [None]
  - PANIC ATTACK [None]
  - HEART RATE ABNORMAL [None]
  - THROAT TIGHTNESS [None]
  - DYSPNOEA [None]
  - ANXIETY [None]
  - CRYING [None]
  - DRUG WITHDRAWAL SYNDROME [None]
